FAERS Safety Report 7259169-6 (Version None)
Quarter: 2011Q1

REPORT INFORMATION
  Report Type: 
  Country: None (occurrence: None)
  Receive Date: 20110129
  Receipt Date: 20100625
  Transmission Date: 20110831
  Serious: No
  Sender: FDA-Public Use
  Company Number: US-ABBOTT-10P-163-0653582-00

PATIENT
  Age: 58 Year
  Sex: Female

DRUGS (9)
  1. FOLIC ACID [Concomitant]
     Indication: PRODUCT USED FOR UNKNOWN INDICATION
     Dosage: 2 ON DAYS TAKE METHOTREXATE, 1 EOD
  2. REQUIP [Concomitant]
     Indication: RESTLESS LEGS SYNDROME
  3. METHOTREXATE [Concomitant]
     Indication: ARTHRITIS
  4. FLEXERIL [Concomitant]
     Indication: RHEUMATOID ARTHRITIS
  5. FLEXERIL [Concomitant]
     Indication: INTERVERTEBRAL DISC DISORDER
  6. ATIVAN [Concomitant]
     Indication: ANXIETY
  7. HUMIRA [Suspect]
     Indication: RHEUMATOID ARTHRITIS
     Dates: start: 20100501, end: 20100610
  8. FLEXERIL [Concomitant]
     Indication: FIBROMYALGIA
  9. HYDROCODONE [Concomitant]
     Indication: PAIN

REACTIONS (3)
  - INJECTION SITE PAIN [None]
  - FEELING ABNORMAL [None]
  - OEDEMA PERIPHERAL [None]
